FAERS Safety Report 4746214-2 (Version None)
Quarter: 2005Q3

REPORT INFORMATION
  Report Type: 
  Country: None (occurrence: None)
  Receive Date: 20050816
  Receipt Date: 20050805
  Transmission Date: 20060218
  Serious: Yes (Other)
  Sender: FDA-Public Use
  Company Number: KII-2005-0017854

PATIENT
  Age: 62 Year
  Sex: Female

DRUGS (11)
  1. MORPHINE SULFATE [Suspect]
     Dosage: ORAL
     Route: 048
  2. HYPNOTICS AND SEDATIVES() [Suspect]
     Dosage: SEE TEXT, ORAL
     Route: 047
  3. LITHIUM CARBONATE [Suspect]
     Dosage: ORAL
     Route: 048
  4. OXCARBAZEPINE (OXCARBAZEPINE) [Suspect]
     Dosage: ORAL
     Route: 048
  5. SSRI() [Suspect]
     Dosage: ORAL
     Route: 048
  6. HYOSCYAMINE (HYOSCYAMINE) [Suspect]
     Dosage: ORAL
     Route: 048
  7. RALOXIFENE HCL [Suspect]
     Dosage: ORAL
     Route: 048
  8. LOPERAMIDE HCL [Suspect]
     Dosage: ORAL
     Route: 048
  9. SYNTHROID [Suspect]
     Dosage: ORAL
     Route: 048
  10. ANTIPSYCHOTICS() [Suspect]
     Dosage: ORAL
     Route: 048
  11. ACETAMINOPHEN [Suspect]

REACTIONS (5)
  - BLOOD PRESSURE SYSTOLIC INCREASED [None]
  - HEART RATE INCREASED [None]
  - LETHARGY [None]
  - OXYGEN SATURATION DECREASED [None]
  - SOMNOLENCE [None]
